FAERS Safety Report 7145378-3 (Version None)
Quarter: 2010Q4

REPORT INFORMATION
  Report Type: 
  Country: None (occurrence: None)
  Receive Date: 20101208
  Receipt Date: 20101126
  Transmission Date: 20110411
  Serious: Yes (Congenital Anomaly, Other)
  Sender: FDA-Public Use
  Company Number: DE-ROCHE-738134

PATIENT
  Sex: Female
  Weight: 1.6 kg

DRUGS (11)
  1. CELLCEPT [Suspect]
     Indication: RENAL TRANSPLANT
     Route: 064
     Dates: end: 20100506
  2. AZATHIOPRIN [Concomitant]
     Indication: RENAL TRANSPLANT
  3. TACROLIMUS [Concomitant]
     Indication: RENAL TRANSPLANT
  4. PREDNISOLONE [Concomitant]
     Indication: RENAL TRANSPLANT
  5. ERYTHROPOIETIN ALFA [Concomitant]
     Dates: end: 20100506
  6. ESOMEPRAZOLE [Concomitant]
     Dates: end: 20100506
  7. LEVOTHYROXINE SODIUM [Concomitant]
  8. FUROSEMID [Concomitant]
     Dates: end: 20100506
  9. FLUVASTATIN [Concomitant]
     Dates: end: 20100506
  10. ENALAPRIL [Concomitant]
     Dates: end: 20100506
  11. EISEN(II)-GLUCONAT [Concomitant]

REACTIONS (5)
  - EXTERNAL AUDITORY CANAL ATRESIA [None]
  - IRIS COLOBOMA [None]
  - MICROPHTHALMOS [None]
  - MICROTIA [None]
  - PREMATURE LABOUR [None]
